FAERS Safety Report 5224417-0 (Version None)
Quarter: 2007Q1

REPORT INFORMATION
  Report Type: 
  Country: None (occurrence: None)
  Receive Date: 20070130
  Receipt Date: 20061113
  Transmission Date: 20070707
  Serious: Yes (Other)
  Sender: FDA-Public Use
  Company Number: US-PFIZER INC-2006142505

PATIENT
  Sex: Female
  Weight: 56.7 kg

DRUGS (1)
  1. DETROL LA [Suspect]
     Indication: INCONTINENCE
     Dates: start: 20050101, end: 20051201

REACTIONS (1)
  - GLAUCOMA [None]
